FAERS Safety Report 10162431 (Version 3)
Quarter: 2014Q2

REPORT INFORMATION
  Report Type: Report from Study
  Country: CA (occurrence: CA)
  Receive Date: 20140509
  Receipt Date: 20140613
  Transmission Date: 20141212
  Serious: Yes (Hospitalization)
  Sender: FDA-Public Use
  Company Number: CA-US-EMD SERONO, INC.-7288622

PATIENT
  Age: 49 Year
  Sex: Male

DRUGS (1)
  1. REBIF [Suspect]
     Indication: MULTIPLE SCLEROSIS
     Route: 058
     Dates: start: 20130628, end: 201403

REACTIONS (8)
  - Multiple sclerosis relapse [Recovering/Resolving]
  - Nausea [Recovering/Resolving]
  - Dizziness [Recovering/Resolving]
  - Central nervous system lesion [Recovered/Resolved]
  - Hepatic enzyme increased [Unknown]
  - Headache [Unknown]
  - Myalgia [Unknown]
  - Drug ineffective [Unknown]
